FAERS Safety Report 5854207-7 (Version None)
Quarter: 2008Q3

REPORT INFORMATION
  Report Type: 
  Country: None (occurrence: None)
  Receive Date: 20080818
  Receipt Date: 20080425
  Transmission Date: 20090109
  Serious: No
  Sender: FDA-Public Use
  Company Number: WAES 0804USA05553

PATIENT
  Age: 70 Year
  Sex: Female

DRUGS (12)
  1. JANUVIA [Suspect]
     Indication: TYPE 2 DIABETES MELLITUS
     Dosage: 100 MG/DAILY/PO
     Route: 048
     Dates: start: 20080318
  2. BUMEX [Concomitant]
  3. COUMADIN [Concomitant]
  4. FLEXERIL [Concomitant]
  5. MS CONTIN [Concomitant]
  6. SYNTHROID [Concomitant]
  7. ZOVIRAX [Concomitant]
  8. MAGNESIUM (UNSPECIFIED) [Concomitant]
  9. NADOLOL [Concomitant]
  10. OMEGA-3 MARINE TRIGLYCERIDES [Concomitant]
  11. POTASSIUM (UNSPECIFIED) [Concomitant]
  12. PREDNISONE TAB [Concomitant]

REACTIONS (5)
  - DYSGEUSIA [None]
  - DYSPHAGIA [None]
  - DYSPHONIA [None]
  - HYPOSMIA [None]
  - LARYNGEAL OEDEMA [None]
